FAERS Safety Report 24121055 (Version 1)
Quarter: 2024Q3

REPORT INFORMATION
  Report Type: Report from Study
  Country: US (occurrence: None)
  Receive Date: 20240722
  Receipt Date: 20240722
  Transmission Date: 20241016
  Serious: Yes (Hospitalization)
  Sender: ASTRAZENECA
  Company Number: 2020SE82743

PATIENT
  Age: 24099 Day
  Sex: Male

DRUGS (1)
  1. BRILINTA [Suspect]
     Active Substance: TICAGRELOR
     Route: 048
     Dates: start: 20200620, end: 20200620

REACTIONS (1)
  - Movement disorder [Recovering/Resolving]

NARRATIVE: CASE EVENT DATE: 20200620
